FAERS Safety Report 19876874 (Version 2)
Quarter: 2021Q4

REPORT INFORMATION
  Report Type: Spontaneous
  Country: US (occurrence: US)
  Receive Date: 20210923
  Receipt Date: 20211124
  Transmission Date: 20220303
  Serious: Yes (Other)
  Sender: FDA-Public Use
  Company Number: US-OTSUKA-2021_032418

PATIENT
  Age: 73 Year
  Sex: Male

DRUGS (2)
  1. ABILIFY MAINTENA [Suspect]
     Active Substance: ARIPIPRAZOLE
     Indication: Schizophrenia
     Dosage: 300 MG, QM
     Route: 065
  2. ABILIFY [Suspect]
     Active Substance: ARIPIPRAZOLE
     Indication: Schizophrenia
     Dosage: 20 MG
     Route: 065

REACTIONS (7)
  - Toxicity to various agents [Unknown]
  - Frequent bowel movements [Unknown]
  - Dizziness [Unknown]
  - Syncope [Unknown]
  - Fatigue [Unknown]
  - Hypertension [Unknown]
  - Underdose [Unknown]
